FAERS Safety Report 7266804-5 (Version None)
Quarter: 2011Q1

REPORT INFORMATION
  Report Type: 
  Country: None (occurrence: None)
  Receive Date: 20110201
  Receipt Date: 20110117
  Transmission Date: 20110831
  Serious: Yes (Life-Threatening, Hospitalization, Other)
  Sender: FDA-Public Use
  Company Number: US-JNJFOC-20101205255

PATIENT
  Sex: Female
  Weight: 127.01 kg

DRUGS (21)
  1. REMICADE [Suspect]
     Route: 042
  2. REMICADE [Suspect]
     Route: 042
  3. REMICADE [Suspect]
     Route: 042
  4. LISINOPRIL AND HYDROCHLOROTHIAZIDE [Concomitant]
     Dosage: 25MG-20 MG DAILY
  5. PERCOCET [Concomitant]
     Dosage: 1-2 TABS EVERY 4 OURS AS NEEDED
  6. LAMICTAL [Concomitant]
  7. STELARA [Suspect]
     Indication: PSORIASIS
     Route: 058
  8. REMICADE [Suspect]
     Route: 042
  9. REMICADE [Suspect]
     Route: 042
  10. SEROQUEL [Concomitant]
  11. REMICADE [Suspect]
     Route: 042
  12. REMICADE [Suspect]
     Route: 042
  13. ACTOS [Concomitant]
  14. AQUAPHOR [Concomitant]
  15. FERREX 150 [Concomitant]
  16. TRAZODONE HCL [Concomitant]
  17. WELLBUTRIN XL [Concomitant]
  18. STELARA [Suspect]
     Route: 058
  19. REMICADE [Suspect]
     Indication: PSORIASIS
     Route: 042
  20. VISTARIL [Concomitant]
  21. EVISTA [Concomitant]

REACTIONS (7)
  - COMA [None]
  - PNEUMONIA STREPTOCOCCAL [None]
  - PSORIASIS [None]
  - DEAFNESS [None]
  - AMNESIA [None]
  - SEPSIS [None]
  - MENINGITIS PNEUMOCOCCAL [None]
